FAERS Safety Report 14913532 (Version 2)
Quarter: 2018Q2

REPORT INFORMATION
  Report Type: Report from Study
  Country: US (occurrence: US)
  Receive Date: 20180518
  Receipt Date: 20180606
  Transmission Date: 20180711
  Serious: Yes (Other)
  Sender: FDA-Public Use
  Company Number: US-AMGEN-USASL2018052847

PATIENT
  Age: 83 Year
  Sex: Female
  Weight: 122 kg

DRUGS (1)
  1. PROLIA [Suspect]
     Active Substance: DENOSUMAB
     Indication: OSTEOPOROSIS POSTMENOPAUSAL
     Dosage: 60 MG, Q6MO
     Route: 058
     Dates: start: 20160428

REACTIONS (7)
  - Pleural effusion [Unknown]
  - Cholecystitis infective [Unknown]
  - Cholelithiasis [Unknown]
  - Cystitis [Unknown]
  - Ear disorder [Unknown]
  - Hepatic cyst [Unknown]
  - Tinnitus [Unknown]

NARRATIVE: CASE EVENT DATE: 201610
